FAERS Safety Report 22027842 (Version 2)
Quarter: 2024Q4

REPORT INFORMATION
  Report Type: Spontaneous
  Country: US (occurrence: US)
  Receive Date: 20230223
  Receipt Date: 20241018
  Transmission Date: 20250115
  Serious: No
  Sender: ROCHE
  Company Number: US-ROCHE-3220616

PATIENT
  Age: 33 Year
  Sex: Female
  Weight: 54.0 kg

DRUGS (2)
  1. XOLAIR [Suspect]
     Active Substance: OMALIZUMAB
     Indication: Idiopathic urticaria
     Dosage: STRENGTH: 150MG/ML
     Route: 058
     Dates: start: 20211115
  2. XOLAIR [Suspect]
     Active Substance: OMALIZUMAB
     Route: 058

REACTIONS (2)
  - Off label use [Unknown]
  - Urticaria [Unknown]
